FAERS Safety Report 6997072-7 (Version None)
Quarter: 2010Q3

REPORT INFORMATION
  Report Type: 
  Country: None (occurrence: None)
  Receive Date: 20100918
  Receipt Date: 20090903
  Transmission Date: 20110219
  Serious: No
  Sender: FDA-Public Use
  Company Number: US-WYE-H10853409

PATIENT
  Age: 73 Year
  Sex: Female

DRUGS (3)
  1. PREMPRO [Suspect]
     Indication: HORMONE REPLACEMENT THERAPY
     Dosage: 0.625MG; FREQUENCY UNKNOWN
     Route: 048
     Dates: start: 19940101, end: 20050101
  2. PREMPRO [Suspect]
     Dosage: 0.45/1.5MG; FREQUENCY UNKNOWN
     Dates: start: 20050101
  3. VALIUM [Concomitant]

REACTIONS (2)
  - THERAPEUTIC RESPONSE UNEXPECTED [None]
  - UTERINE LEIOMYOMA [None]
